FAERS Safety Report 6143063-8 (Version None)
Quarter: 2009Q2

REPORT INFORMATION
  Report Type: 
  Country: None (occurrence: None)
  Receive Date: 20090401
  Receipt Date: 20090401
  Transmission Date: 20091009
  Serious: Yes (Hospitalization)
  Sender: FDA-Public Use
  Company Number: None

PATIENT
  Age: 59 Year
  Sex: Male
  Weight: 65 kg

DRUGS (2)
  1. AMPICILLIN AND SULBACTAM [Suspect]
     Indication: INFECTION
     Dosage: 3 GM QID IV
     Route: 042
     Dates: start: 20081127, end: 20081201
  2. AMOXICILLIN AND CLAVULANATE POTASSIUM [Suspect]
     Indication: INFECTION
     Dosage: 875/125 MG BID PO
     Route: 048
     Dates: start: 20081202, end: 20081204

REACTIONS (4)
  - DRUG HYPERSENSITIVITY [None]
  - RASH [None]
  - VASCULITIS [None]
  - VIRAL INFECTION [None]
